FAERS Safety Report 6667154-8 (Version None)
Quarter: 2010Q1

REPORT INFORMATION
  Report Type: 
  Country: None (occurrence: None)
  Receive Date: 20100331
  Receipt Date: 20100316
  Transmission Date: 20100710
  Serious: Yes (Hospitalization)
  Sender: FDA-Public Use
  Company Number: DSA_42685_2010

PATIENT
  Age: 61 Year
  Sex: Male

DRUGS (6)
  1. HERBESSER R [Suspect]
     Indication: ANGINA UNSTABLE
     Dosage: (200 MG QD ORAL)
     Route: 048
     Dates: start: 20100107, end: 20100115
  2. BAYASPIRIN (BAYASPIRIN ACETYLSALICYLIC ACID) (NOT SPECIFIED) [Suspect]
     Indication: ANGINA UNSTABLE
     Dosage: (100 MG QD ORAL)
     Route: 048
     Dates: start: 20100107
  3. BAYASPIRIN (BAYASPIRIN ACETYLSALICYLIC ACID) (NOT SPECIFIED) [Suspect]
     Indication: PERCUTANEOUS CORONARY INTERVENTION
     Dosage: (100 MG QD ORAL)
     Route: 048
     Dates: start: 20100107
  4. PLAVIX [Concomitant]
  5. LIPITOR [Concomitant]
  6. PARIET [Concomitant]

REACTIONS (6)
  - ACUTE GENERALISED EXANTHEMATOUS PUSTULOSIS [None]
  - ALANINE AMINOTRANSFERASE INCREASED [None]
  - ASPARTATE AMINOTRANSFERASE INCREASED [None]
  - BLOOD BILIRUBIN INCREASED [None]
  - BLOOD UREA INCREASED [None]
  - HEPATIC FUNCTION ABNORMAL [None]
